FAERS Safety Report 9625851 (Version 1)
Quarter: 2013Q4

REPORT INFORMATION
  Report Type: Spontaneous
  Country: US (occurrence: US)
  Receive Date: 20131016
  Receipt Date: 20131016
  Transmission Date: 20140711
  Serious: No
  Sender: FDA-Public Use
  Company Number: US-BAXTER-2013BAX040246

PATIENT
  Sex: Female

DRUGS (1)
  1. 5% DEXTROSE AND 0.2% SODIUM CHLORIDE INJECTION USP [Suspect]
     Indication: PRODUCT USED FOR UNKNOWN INDICATION

REACTIONS (2)
  - Expired drug administered [Unknown]
  - No adverse event [Recovered/Resolved]
